FAERS Safety Report 5965054-X (Version None)
Quarter: 2008Q4

REPORT INFORMATION
  Report Type: 
  Country: None (occurrence: None)
  Receive Date: 20081124
  Receipt Date: 20081124
  Transmission Date: 20090506
  Serious: No
  Sender: FDA-Public Use
  Company Number: None

PATIENT
  Age: 82 Year
  Sex: Male
  Weight: 65.7716 kg

DRUGS (1)
  1. NIFEDIPINE [Suspect]

REACTIONS (2)
  - DRUG HYPERSENSITIVITY [None]
  - TREMOR [None]
